FAERS Safety Report 9994194 (Version 2)
Quarter: 2014Q2

REPORT INFORMATION
  Report Type: Spontaneous
  Country: SE (occurrence: SE)
  Receive Date: 20140310
  Receipt Date: 20140619
  Transmission Date: 20141212
  Serious: Yes (Other)
  Sender: FDA-Public Use
  Company Number: SE-BAXTER-2014BAX010397

PATIENT
  Age: 68 Year
  Sex: Female

DRUGS (2)
  1. KIOVIG 100 MG/ML INFUSIONSV?TSKA, L?SNING [Suspect]
     Indication: POLYMYOSITIS
     Route: 042
     Dates: start: 20130417, end: 20130417
  2. KIOVIG 100 MG/ML INFUSIONSV?TSKA, L?SNING [Suspect]
     Indication: OFF LABEL USE

REACTIONS (3)
  - Atrial fibrillation [Unknown]
  - Pyrexia [Unknown]
  - Rash [Unknown]
